FAERS Safety Report 8460234-6 (Version None)
Quarter: 2012Q2

REPORT INFORMATION
  Report Type: 
  Country: None (occurrence: None)
  Receive Date: 20120622
  Receipt Date: 20120618
  Transmission Date: 20120825
  Serious: Yes (Other)
  Sender: FDA-Public Use
  Company Number: BR-PFIZER INC-2012147039

PATIENT
  Sex: Female

DRUGS (1)
  1. LYRICA [Suspect]
     Dosage: 150 MG, 2X/DAY

REACTIONS (3)
  - DIABETES MELLITUS [None]
  - DEPRESSION [None]
  - RHABDOMYOLYSIS [None]
